FAERS Safety Report 6565499-3 (Version None)
Quarter: 2010Q1

REPORT INFORMATION
  Report Type: 
  Country: None (occurrence: None)
  Receive Date: 20100201
  Receipt Date: 20100119
  Transmission Date: 20100710
  Serious: Yes (Hospitalization, Other)
  Sender: FDA-Public Use
  Company Number: US-ELI_LILLY_AND_COMPANY-US201001004257

PATIENT
  Sex: Female

DRUGS (2)
  1. EFFIENT [Suspect]
     Indication: CORONARY ARTERY DISEASE
     Dosage: 10 MG, DAILY (1/D)
     Dates: start: 20100116
  2. PLAVIX [Concomitant]
     Dates: end: 20100116

REACTIONS (1)
  - CORONARY ARTERY OCCLUSION [None]
